FAERS Safety Report 12851356 (Version 1)
Quarter: 2016Q4

REPORT INFORMATION
  Report Type: Report from Study
  Country: PL (occurrence: PL)
  Receive Date: 20161016
  Receipt Date: 20161016
  Transmission Date: 20170207
  Serious: Yes (Hospitalization)
  Sender: FDA-Public Use
  Company Number: PL-B.I. PHARMACEUTICALS,INC./RIDGEFIELD-2016-BI-61888BI

PATIENT
  Age: 66 Year
  Sex: Female
  Weight: 80.5 kg

DRUGS (11)
  1. KALDIUM [Concomitant]
     Indication: PROPHYLAXIS
     Route: 048
     Dates: start: 20160704
  2. PANPRAZOX [Concomitant]
     Indication: PROPHYLAXIS
     Route: 048
     Dates: start: 20160704
  3. DIAPREL [Concomitant]
     Active Substance: GLICLAZIDE
     Indication: TYPE 2 DIABETES MELLITUS
     Dosage: MODIFIED RELEASE- MR
     Route: 048
     Dates: start: 20160520
  4. FUROSEMIDUM [Concomitant]
     Active Substance: FUROSEMIDE
     Indication: CARDIAC FAILURE CONGESTIVE
     Route: 048
     Dates: start: 20130130
  5. NONPRES [Concomitant]
     Indication: CARDIAC FAILURE CONGESTIVE
     Route: 048
     Dates: start: 20151020
  6. BLINDED LINAGLIPTIN [Suspect]
     Active Substance: LINAGLIPTIN
     Indication: TYPE 2 DIABETES MELLITUS
     Route: 048
     Dates: start: 20150327
  7. ATRAM [Concomitant]
     Indication: CARDIAC FAILURE CONGESTIVE
     Route: 048
     Dates: start: 20160801
  8. AXTIL [Concomitant]
     Indication: CARDIAC FAILURE CONGESTIVE
     Route: 048
  9. MILURIT [Concomitant]
     Active Substance: ALLOPURINOL
     Indication: GOUT
     Route: 048
     Dates: start: 20121024
  10. ACENOCUMAROL [Concomitant]
     Active Substance: ACENOCOUMAROL
     Indication: ATRIAL FIBRILLATION
     Dosage: TOTAL DAILY DOSE:2MG EVERY OTHER DAY AND 1MG EVERY OTHER DAY
     Route: 048
     Dates: start: 20120410
  11. DIGOXIN. [Concomitant]
     Active Substance: DIGOXIN
     Indication: CARDIAC FAILURE CONGESTIVE
     Route: 048
     Dates: start: 20160813

REACTIONS (1)
  - Diabetic metabolic decompensation [Not Recovered/Not Resolved]

NARRATIVE: CASE EVENT DATE: 20160920
